FAERS Safety Report 19449046 (Version 2)
Quarter: 2021Q3

REPORT INFORMATION
  Report Type: Spontaneous
  Country: FR (occurrence: FR)
  Receive Date: 20210622
  Receipt Date: 20210706
  Transmission Date: 20211014
  Serious: Yes (Disabling, Other)
  Sender: FDA-Public Use
  Company Number: FR-ROCHE-2851542

PATIENT
  Age: 73 Year
  Sex: Female
  Weight: 54 kg

DRUGS (13)
  1. GAZYVARO [Suspect]
     Active Substance: OBINUTUZUMAB
     Indication: PRODUCT USED FOR UNKNOWN INDICATION
     Route: 042
     Dates: start: 20210427, end: 20210427
  2. CLOPIDOGREL [Concomitant]
     Active Substance: CLOPIDOGREL BISULFATE
  3. DIFFU?K [Concomitant]
     Active Substance: POTASSIUM CHLORIDE
  4. BISOPROLOL [Concomitant]
     Active Substance: BISOPROLOL
  5. METHYLPREDNISOLONE. [Concomitant]
     Active Substance: METHYLPREDNISOLONE
     Route: 042
  6. POLARAMINE [Concomitant]
     Active Substance: DEXCHLORPHENIRAMINE MALEATE
     Route: 042
  7. RAMIPRIL. [Concomitant]
     Active Substance: RAMIPRIL
  8. SPIRONOLACTONE. [Concomitant]
     Active Substance: SPIRONOLACTONE
     Dosage: 25 MG 0.5 TABLETS IN THE MORNING
  9. ESOMEPRAZOLE. [Concomitant]
     Active Substance: ESOMEPRAZOLE MAGNESIUM
  10. LANSOPRAZOLE. [Concomitant]
     Active Substance: LANSOPRAZOLE
  11. ENTRESTO [Concomitant]
     Active Substance: SACUBITRIL\VALSARTAN
  12. FUROSEMIDE. [Concomitant]
     Active Substance: FUROSEMIDE
  13. BISOPROLOL [Concomitant]
     Active Substance: BISOPROLOL
     Dosage: 10 MG 0.5 TABLETS IN THE MORNING

REACTIONS (4)
  - Respiratory distress [Recovered/Resolved with Sequelae]
  - Acute pulmonary oedema [Recovering/Resolving]
  - Ejection fraction decreased [Not Recovered/Not Resolved]
  - Cardiac failure [Not Recovered/Not Resolved]

NARRATIVE: CASE EVENT DATE: 20210429
